FAERS Safety Report 10338081 (Version 1)
Quarter: 2014Q3

REPORT INFORMATION
  Report Type: Spontaneous
  Country: US (occurrence: None)
  Receive Date: 20140722
  Receipt Date: 20140722
  Transmission Date: 20150326
  Serious: Yes (Life-Threatening)
  Sender: FDA-Public Use
  Company Number: None

PATIENT
  Age: 29 Year
  Sex: Female
  Weight: 62.7 kg

DRUGS (1)
  1. MAGNESIUM SULFATE [Suspect]
     Active Substance: MAGNESIUM SULFATE
     Indication: PRE-ECLAMPSIA
     Dosage: 2GM/HR  INFUSION X 2 DOSES  INTRAVENOUS
     Route: 042
     Dates: start: 20140707, end: 20140707

REACTIONS (3)
  - Lethargy [None]
  - Hyporeflexia [None]
  - Dysarthria [None]

NARRATIVE: CASE EVENT DATE: 20140711
